FAERS Safety Report 4381863-5 (Version None)
Quarter: 2004Q2

REPORT INFORMATION
  Report Type: 
  Country: None (occurrence: None)
  Receive Date: 20040615
  Receipt Date: 20040602
  Transmission Date: 20050107
  Serious: Yes (Hospitalization)
  Sender: FDA-Public Use
  Company Number: 2004030507

PATIENT
  Age: 74 Year
  Sex: Female

DRUGS (2)
  1. LIPITOR [Suspect]
     Indication: DYSLIPIDAEMIA
     Dosage: 10 MG (10 MG, 1 IN 1 D), ORAL
     Route: 048
     Dates: start: 20040430
  2. CHLORTALIDONE (CHLORTALIDONE) [Concomitant]

REACTIONS (3)
  - BLADDER OPERATION [None]
  - HYSTERECTOMY [None]
  - PAIN [None]
